FAERS Safety Report 9979092 (Version 1)
Quarter: 2014Q1

REPORT INFORMATION
  Report Type: Report from Study
  Country: US (occurrence: US)
  Receive Date: 20140306
  Receipt Date: 20140306
  Transmission Date: 20141002
  Serious: No
  Sender: FDA-Public Use
  Company Number: US-ABBVIE-13P-163-1169115-00

PATIENT
  Sex: Female

DRUGS (5)
  1. HUMIRA [Suspect]
     Indication: RHEUMATOID ARTHRITIS
     Dates: start: 20130815
  2. ALEVE [Concomitant]
     Indication: TENDON RUPTURE
  3. METHOTREXATE [Concomitant]
     Indication: PRODUCT USED FOR UNKNOWN INDICATION
     Dosage: TEN PILLS
  4. METHOTREXATE [Concomitant]
     Dosage: SIX PILLS
  5. METHOTREXATE [Concomitant]
     Dosage: FOR THE PAST TWO WEEKS FOUR PILLS WEEKLY ON MONDAY^S

REACTIONS (1)
  - Unevaluable event [Unknown]
